FAERS Safety Report 8568153-1 (Version None)
Quarter: 2012Q3

REPORT INFORMATION
  Report Type: 
  Country: None (occurrence: None)
  Receive Date: 20120803
  Receipt Date: 20111123
  Transmission Date: 20120928
  Serious: No
  Sender: FDA-Public Use
  Company Number: US-ABBOTT-11P-163-0877358-00

PATIENT
  Sex: Male
  Weight: 108.96 kg

DRUGS (4)
  1. NIASPAN [Suspect]
     Indication: HIGH DENSITY LIPOPROTEIN DECREASED
     Dates: start: 20081201, end: 20101101
  2. UNKNOWN BLOOD PRESSURE [Concomitant]
     Indication: HYPERTENSION
  3. LIPITOR [Suspect]
     Indication: BLOOD CHOLESTEROL
     Dates: start: 20060101, end: 20111101
  4. NIASPAN [Suspect]
     Indication: HIGH DENSITY LIPOPROTEIN DECREASED
     Dates: start: 20101101, end: 20111101

REACTIONS (2)
  - MYALGIA [None]
  - MUSCLE TWITCHING [None]
